FAERS Safety Report 23903960 (Version 1)
Quarter: 2024Q2

REPORT INFORMATION
  Report Type: Spontaneous
  Country: BE (occurrence: BE)
  Receive Date: 20240527
  Receipt Date: 20240527
  Transmission Date: 20240716
  Serious: Yes (Other)
  Sender: FDA-Public Use
  Company Number: None

PATIENT
  Age: 22 Year
  Sex: Male

DRUGS (1)
  1. LAMISIL [Suspect]
     Active Substance: TERBINAFINE HYDROCHLORIDE
     Indication: Onychomycosis
     Dosage: UNK
     Route: 065

REACTIONS (5)
  - Flushing [Recovered/Resolved]
  - Disorganised speech [Recovered/Resolved]
  - Myalgia [Recovered/Resolved]
  - Chromaturia [Recovered/Resolved]
  - Visual impairment [Recovered/Resolved]
